FAERS Safety Report 13076282 (Version 2)
Quarter: 2017Q2

REPORT INFORMATION
  Report Type: Spontaneous
  Country: CN (occurrence: CN)
  Receive Date: 20161230
  Receipt Date: 20170614
  Transmission Date: 20170830
  Serious: Yes (Hospitalization, Other)
  Sender: FDA-Public Use
  Company Number: CN-GLAXOSMITHKLINE-CN2016GSK191871

PATIENT
  Age: 64 Year
  Sex: Male

DRUGS (6)
  1. VALPROATE SODIUM. [Suspect]
     Active Substance: VALPROATE SODIUM
     Dosage: 750 MG IN THE MORNING AND 500 MG IN THE AFTERNOON
  2. LAMOTRIGINE. [Suspect]
     Active Substance: LAMOTRIGINE
     Indication: EPILEPSY
     Dosage: 25 MG, QD
     Dates: start: 20130817, end: 20130920
  3. CARBAMAZEPINE. [Concomitant]
     Active Substance: CARBAMAZEPINE
     Indication: EPILEPSY
     Dosage: 400 MG, BID
  4. TOPIRAMATE. [Concomitant]
     Active Substance: TOPIRAMATE
     Indication: EPILEPSY
     Dosage: 25 MG, BID
  5. VALPROATE SODIUM. [Suspect]
     Active Substance: VALPROATE SODIUM
     Indication: EPILEPSY
     Dosage: 500 MG, BID
     Dates: start: 201304
  6. VALPROATE SODIUM. [Suspect]
     Active Substance: VALPROATE SODIUM
     Dosage: 500 UNK, UNK
     Dates: start: 20130817

REACTIONS (27)
  - Rash [Recovered/Resolved]
  - Communication disorder [Unknown]
  - Hepatic function abnormal [Recovered/Resolved]
  - Aphasia [Recovered/Resolved]
  - Depressed level of consciousness [Unknown]
  - Seizure [Recovered/Resolved]
  - Muscle twitching [Unknown]
  - Generalised tonic-clonic seizure [Recovered/Resolved]
  - Measles [Recovered/Resolved]
  - Dizziness [Unknown]
  - Blister [Unknown]
  - Drug reaction with eosinophilia and systemic symptoms [Recovered/Resolved]
  - Skin exfoliation [Recovered/Resolved]
  - Temperature intolerance [Unknown]
  - Mouth ulceration [Recovered/Resolved]
  - Eye discharge [Unknown]
  - Erythema [Recovered/Resolved]
  - Drug eruption [Recovered/Resolved]
  - Pyrexia [Recovered/Resolved]
  - Rash erythematous [Unknown]
  - Red blood cell abnormality [Unknown]
  - Depressed level of consciousness [Recovered/Resolved]
  - Mouth ulceration [Recovered/Resolved]
  - Delirium [Recovered/Resolved]
  - Gait disturbance [Unknown]
  - Rash maculo-papular [Recovered/Resolved]
  - Lip oedema [Recovered/Resolved]

NARRATIVE: CASE EVENT DATE: 20130918
